FAERS Safety Report 16934463 (Version 2)
Quarter: 2019Q4

REPORT INFORMATION
  Report Type: Report from Study
  Country: PK (occurrence: PK)
  Receive Date: 20191018
  Receipt Date: 20191029
  Transmission Date: 20200122
  Serious: Yes (Death)
  Sender: FDA-Public Use
  Company Number: NVSC2019PK004898

PATIENT
  Sex: Male
  Weight: 63 kg

DRUGS (1)
  1. TASIGNA [Suspect]
     Active Substance: NILOTINIB
     Indication: CHRONIC MYELOID LEUKAEMIA
     Dosage: 3 DF, QD (2 CAPSULES IN MORNING AND 1 CAPSULE IN EVENING)
     Route: 048
     Dates: start: 20190913

REACTIONS (4)
  - Speech disorder [Fatal]
  - Death [Fatal]
  - Loss of consciousness [Fatal]
  - Respiration abnormal [Fatal]
